FAERS Safety Report 9715239 (Version 2)
Quarter: 2014Q1

REPORT INFORMATION
  Report Type: Report from Study
  Country: US (occurrence: US)
  Receive Date: 20131126
  Receipt Date: 20140124
  Transmission Date: 20141002
  Serious: Yes (Hospitalization, Other)
  Sender: FDA-Public Use
  Company Number: US-ABBVIE-13P-163-1170545-00

PATIENT
  Age: 69 Year
  Sex: Female

DRUGS (17)
  1. HUMIRA [Suspect]
     Indication: CROHN^S DISEASE
     Route: 058
     Dates: start: 20121128
  2. ROXICODONE [Concomitant]
     Indication: PRODUCT USED FOR UNKNOWN INDICATION
  3. ABILIFY [Concomitant]
     Indication: PRODUCT USED FOR UNKNOWN INDICATION
     Route: 048
  4. ALPRAZOLAM [Concomitant]
     Indication: PRODUCT USED FOR UNKNOWN INDICATION
     Dosage: 1 TABLET TWIC DAILY AS NEEDED
     Route: 048
     Dates: start: 20130627
  5. BUDESONIDE ER [Concomitant]
     Indication: PRODUCT USED FOR UNKNOWN INDICATION
     Route: 048
  6. DICYCLOMINE HCL [Concomitant]
     Indication: PRODUCT USED FOR UNKNOWN INDICATION
     Dosage: 2 X DAY PRN
     Route: 048
  7. LISINOPRIL-HYDROCHLOROTHIAZIDE [Concomitant]
     Indication: PRODUCT USED FOR UNKNOWN INDICATION
     Dosage: 10 - 12.5 MG
     Route: 048
     Dates: start: 20100106
  8. NEXIUM [Concomitant]
     Indication: PRODUCT USED FOR UNKNOWN INDICATION
     Dosage: DELAYED RELEASE 1 CAPSULE DAILY AS NEEDED
     Route: 048
     Dates: start: 20130515
  9. OXYCODONE-ACETAMINOPHEN [Concomitant]
     Indication: PAIN
     Dosage: 1 TABLET EVERY 4 HOUS AS NEEDED
  10. PLAVIX [Concomitant]
     Indication: PRODUCT USED FOR UNKNOWN INDICATION
     Route: 048
     Dates: start: 20120821
  11. PRAVASTATIN SODIUM [Concomitant]
     Indication: PRODUCT USED FOR UNKNOWN INDICATION
     Route: 048
     Dates: start: 20120821
  12. ROXICODONE [Concomitant]
     Indication: PAIN
     Dosage: 1 TABLET EVERY 6 HOURS AS NEED
     Route: 048
     Dates: start: 20130604
  13. VIIBRYD [Concomitant]
     Indication: PRODUCT USED FOR UNKNOWN INDICATION
     Route: 048
     Dates: start: 20120906
  14. INFLUENZA [Concomitant]
     Indication: PRODUCT USED FOR UNKNOWN INDICATION
     Dosage: SERIES 1
     Dates: start: 20121220, end: 20121220
  15. PNEUMOCOCCAL VACCINE [Concomitant]
     Indication: PRODUCT USED FOR UNKNOWN INDICATION
     Dosage: SERIES 1
     Dates: start: 20130604, end: 20130604
  16. BUDESONIDE [Concomitant]
     Indication: PRODUCT USED FOR UNKNOWN INDICATION
  17. ADDERALL [Concomitant]
     Indication: PRODUCT USED FOR UNKNOWN INDICATION

REACTIONS (28)
  - Convulsion [Recovering/Resolving]
  - Crohn^s disease [Unknown]
  - Mental status changes [Unknown]
  - Convulsion [Unknown]
  - Blood cortisol decreased [Unknown]
  - Gastrooesophageal reflux disease [Unknown]
  - Depression [Unknown]
  - Dyslipidaemia [Unknown]
  - Essential hypertension [Unknown]
  - Hallucination [Unknown]
  - Excoriation [Unknown]
  - Anxiety disorder [Unknown]
  - Melaena [Unknown]
  - Crohn^s disease [Unknown]
  - Gastrooesophageal reflux disease [Unknown]
  - Fatigue [Unknown]
  - Back pain [Unknown]
  - Osteoarthritis [Unknown]
  - Dyspnoea [Unknown]
  - Sinus bradycardia [Unknown]
  - Pollakiuria [Unknown]
  - Syncope [Unknown]
  - Aphasia [Unknown]
  - Constipation [Unknown]
  - Diarrhoea [Recovered/Resolved]
  - Haematuria [Unknown]
  - Cerebrovascular accident [Unknown]
  - Brain neoplasm [Unknown]
